FAERS Safety Report 9809189 (Version 2)
Quarter: 2014Q1

REPORT INFORMATION
  Report Type: Spontaneous
  Country: FR (occurrence: FR)
  Receive Date: 20140110
  Receipt Date: 20140205
  Transmission Date: 20141002
  Serious: Yes (Hospitalization)
  Sender: FDA-Public Use
  Company Number: FR-VERTEX PHARMACEUTICALS INC-2014-000123

PATIENT
  Age: 47 Year
  Sex: Female

DRUGS (11)
  1. INCIVO [Suspect]
     Indication: CHRONIC HEPATITIS C
     Dosage: 1125 MG, BID
     Route: 048
     Dates: start: 20131011, end: 201312
  2. BINOCRIT [Suspect]
     Indication: ANAEMIA
     Dosage: 30000 IU, 2XMONTH
     Route: 050
     Dates: start: 20131017, end: 20131205
  3. RIBAVIRIN [Concomitant]
     Dosage: 400 MG,
  4. PEGASYS [Concomitant]
     Dosage: DOSAGE FORM: SOLUTION FOR INJECTION
  5. FLUOXETINE [Concomitant]
  6. ATARAX [Concomitant]
     Dosage: DOSAGE FORM: TABLET
  7. TRAMADOL [Concomitant]
  8. VALIUM [Concomitant]
     Dosage: DOSAGE FORM: TABLET
  9. XYZALL [Concomitant]
     Dosage: DOSAGE FORM: TABLET
  10. BETNEVAL [Concomitant]
  11. DOLIPRANE [Concomitant]
     Dosage: DOSAGE FORM: TABLET

REACTIONS (1)
  - Drug reaction with eosinophilia and systemic symptoms [Recovered/Resolved]
